FAERS Safety Report 20174954 (Version 1)
Quarter: 2021Q4

REPORT INFORMATION
  Report Type: Spontaneous
  Country: US (occurrence: US)
  Receive Date: 20211213
  Receipt Date: 20211213
  Transmission Date: 20220303
  Serious: No
  Sender: FDA-Public Use
  Company Number: US-BRISTOL-MYERS SQUIBB COMPANY-BMS-2021-130728

PATIENT
  Age: 68 Year
  Sex: Male
  Weight: 97.97 kg

DRUGS (3)
  1. ELIQUIS [Suspect]
     Active Substance: APIXABAN
     Indication: Thrombosis prophylaxis
     Dosage: 2.5 MILLIGRAM, BID
     Route: 065
     Dates: start: 2021
  2. ELIQUIS [Suspect]
     Active Substance: APIXABAN
     Dosage: 2.5 MILLIGRAM, QD
     Route: 065
     Dates: start: 2021
  3. ASPIRIN [Concomitant]
     Active Substance: ASPIRIN
     Indication: Product used for unknown indication
     Dosage: 81 MILLIGRAM, QD
     Route: 065

REACTIONS (4)
  - Chromaturia [Unknown]
  - Haematuria [Unknown]
  - Intentional product use issue [Unknown]
  - Intentional product misuse [Unknown]
